FAERS Safety Report 10270255 (Version 2)
Quarter: 2014Q2

REPORT INFORMATION
  Report Type: Spontaneous
  Country: None (occurrence: None)
  Receive Date: 20140626
  Receipt Date: 20140627
  Transmission Date: 20141212
  Serious: Yes (Other)
  Sender: FDA-Public Use
  Company Number: ADR-2014-01098

PATIENT
  Sex: 0

DRUGS (2)
  1. BACLOFEN INTRATHECAL [Suspect]
     Dosage: 760.7MCG/DAY
  2. ORAL BACLOFEN [Suspect]

REACTIONS (7)
  - Irritability [None]
  - Muscle spasticity [None]
  - Condition aggravated [None]
  - Feeling abnormal [None]
  - Implant site infection [None]
  - Muscle contracture [None]
  - Device malfunction [None]
